FAERS Safety Report 8884042 (Version 4)
Quarter: 2013Q2

REPORT INFORMATION
  Report Type: Report from Study
  Country: FR (occurrence: FR)
  Receive Date: 20121102
  Receipt Date: 20130423
  Transmission Date: 20140414
  Serious: Yes (Hospitalization)
  Sender: FDA-Public Use
  Company Number: FR-EISAI INC-E2007-00923-CLI-FR

PATIENT
  Age: 23 Year
  Sex: Female
  Weight: 76 kg

DRUGS (9)
  1. E2007 (PERAMPANEL) [Suspect]
     Indication: GRAND MAL CONVULSION
     Dosage: DOUBLE-BLIND
     Route: 048
     Dates: start: 20120821, end: 20120915
  2. EPITOMAX [Concomitant]
     Indication: EPILEPSY
     Dosage: 100 MG AM/50 MG PM
     Route: 048
     Dates: start: 201110, end: 20120915
  3. EPITOMAX [Concomitant]
     Route: 048
     Dates: start: 20120916
  4. NEXIUM [Concomitant]
     Indication: ABDOMINAL PAIN
     Route: 048
     Dates: start: 20120917, end: 20120919
  5. SPASFEN [Concomitant]
     Indication: ABDOMINAL PAIN
     Dosage: 62.2/80 MG
     Route: 048
     Dates: start: 20120918, end: 20120919
  6. AERIUS [Concomitant]
     Indication: PRODUCT USED FOR UNKNOWN INDICATION
     Dosage: 1 TAB
     Route: 048
     Dates: end: 20120918
  7. ATARAX [Concomitant]
     Indication: PRODUCT USED FOR UNKNOWN INDICATION
     Route: 048
     Dates: start: 20120916, end: 20120918
  8. FURADANTINE [Concomitant]
     Indication: PRODUCT USED FOR UNKNOWN INDICATION
     Route: 048
     Dates: start: 20120917, end: 20120924
  9. SOLUMEDROL [Concomitant]
     Indication: PRODUCT USED FOR UNKNOWN INDICATION
     Route: 042
     Dates: start: 20120917, end: 20120918

REACTIONS (2)
  - Status epilepticus [Recovered/Resolved]
  - Cholecystitis chronic [Recovered/Resolved]
